FAERS Safety Report 15325557 (Version 2)
Quarter: 2018Q4

REPORT INFORMATION
  Report Type: Report from Study
  Country: DE (occurrence: DE)
  Receive Date: 20180828
  Receipt Date: 20181114
  Transmission Date: 20190204
  Serious: Yes (Hospitalization)
  Sender: FDA-Public Use
  Company Number: DE-PFIZER INC-2018053439

PATIENT
  Age: 68 Year
  Sex: Male
  Weight: 84 kg

DRUGS (21)
  1. NEBIVOLOL. [Concomitant]
     Active Substance: NEBIVOLOL
     Dosage: 5 MG, 2X/DAY
     Route: 048
     Dates: start: 2017
  2. IRINOTECAN HCL [Suspect]
     Active Substance: IRINOTECAN HYDROCHLORIDE
     Indication: COLORECTAL CANCER METASTATIC
     Dosage: 350 MG, UNK
     Route: 065
     Dates: start: 20171211
  3. PANITUMUMAB [Suspect]
     Active Substance: PANITUMUMAB
     Indication: COLORECTAL CANCER METASTATIC
     Dosage: 490 MG, UNK
     Route: 042
     Dates: start: 20171211
  4. FLUOROURACIL. [Suspect]
     Active Substance: FLUOROURACIL
     Dosage: 4725 MG, UNK
     Route: 042
     Dates: start: 20180110
  5. FLUOROURACIL. [Suspect]
     Active Substance: FLUOROURACIL
     Indication: COLORECTAL CANCER METASTATIC
     Dosage: 785 MG, UNK
     Route: 040
     Dates: start: 20171211
  6. FLUOROURACIL. [Suspect]
     Active Substance: FLUOROURACIL
     Dosage: 775 MG, UNK
     Route: 040
     Dates: start: 20180110
  7. ATORVASTATIN [Concomitant]
     Active Substance: ATORVASTATIN
     Indication: HYPERCHOLESTEROLAEMIA
     Dosage: 10 MG, 1X/DAY
     Route: 048
     Dates: start: 2017
  8. SYMBICORT [Concomitant]
     Active Substance: BUDESONIDE\FORMOTEROL FUMARATE DIHYDRATE
     Indication: CHRONIC OBSTRUCTIVE PULMONARY DISEASE
     Dosage: 13.5 UG, 3X/DAY
     Dates: start: 2017
  9. ULUNAR [Concomitant]
     Indication: CHRONIC OBSTRUCTIVE PULMONARY DISEASE
  10. CALCIUM FOLINATE [Suspect]
     Active Substance: LEUCOVORIN CALCIUM
     Indication: COLORECTAL CANCER METASTATIC
     Dosage: 790 MG, UNK
     Route: 065
     Dates: start: 20171211
  11. DOXYCYCLIN RATIOPHARM [Concomitant]
     Indication: RASH
     Dosage: 100 MG, 1X/DAY
     Route: 048
     Dates: start: 20171219
  12. UREA. [Concomitant]
     Active Substance: UREA
     Indication: RASH
     Dosage: UNK UNK, AS NEEDED
     Route: 062
     Dates: start: 20171219
  13. DEXAMETHASONE. [Concomitant]
     Active Substance: DEXAMETHASONE
     Indication: NAUSEA
     Dosage: 4 MG, CYCLIC
     Route: 048
     Dates: start: 20180110
  14. ALLOPURINOL-RATIOPHARM [Concomitant]
     Active Substance: ALLOPURINOL
     Indication: PROPHYLAXIS
     Dosage: 150 MG, 1X/DAY
     Route: 048
     Dates: start: 2017
  15. SYMBICORT [Concomitant]
     Active Substance: BUDESONIDE\FORMOTEROL FUMARATE DIHYDRATE
     Indication: DYSPNOEA
     Dosage: 4.5 UG, 3X/DAY
     Dates: start: 2017
  16. EFIENT [Concomitant]
     Active Substance: PRASUGREL HYDROCHLORIDE
     Indication: THROMBOSIS PROPHYLAXIS
     Dosage: 10 MG, 1X/DAY
     Route: 048
     Dates: start: 2017
  17. ULUNAR [Concomitant]
     Indication: DYSPNOEA
     Dosage: 85 UG, 1X/DAY
     Dates: start: 20171222
  18. AMLODIPIN RATIOPHARM [Concomitant]
     Indication: HYPERTENSION
     Dosage: 5 MG, 1X/DAY
     Route: 048
     Dates: start: 2017
  19. NEBIVOLOL. [Concomitant]
     Active Substance: NEBIVOLOL
     Indication: HYPERTENSION
     Dosage: 5 MG, 1X/DAY
     Route: 048
     Dates: start: 2017
  20. FENISTIL 24 [Concomitant]
     Indication: RASH
     Dosage: 4 MG, 1X/DAY
     Route: 048
     Dates: start: 20171219
  21. EMEND [Concomitant]
     Active Substance: APREPITANT
     Indication: NAUSEA
     Dosage: 285 MG, CYCLIC
     Route: 048
     Dates: start: 20180110

REACTIONS (5)
  - Nausea [Recovered/Resolved]
  - Vomiting [Recovered/Resolved]
  - Rash [Not Recovered/Not Resolved]
  - Vomiting [Recovered/Resolved]
  - Nausea [Recovered/Resolved]

NARRATIVE: CASE EVENT DATE: 20171219
